FAERS Safety Report 5835435-3 (Version None)
Quarter: 2008Q3

REPORT INFORMATION
  Report Type: 
  Country: None (occurrence: None)
  Receive Date: 20080804
  Receipt Date: 20080722
  Transmission Date: 20090109
  Serious: Yes (Hospitalization)
  Sender: FDA-Public Use
  Company Number: 2008BI004985

PATIENT
  Age: 55 Year
  Sex: Female

DRUGS (2)
  1. AVONEX [Suspect]
     Indication: MULTIPLE SCLEROSIS
     Dosage: 30 UG;QW;IM
     Route: 030
     Dates: start: 19980101, end: 20050107
  2. AVONEX [Suspect]
     Indication: MULTIPLE SCLEROSIS
     Dosage: 30 UG;QW;IM
     Route: 030
     Dates: start: 20080207

REACTIONS (7)
  - DIABETES MELLITUS [None]
  - GRAFT INFECTION [None]
  - LEG AMPUTATION [None]
  - MOVEMENT DISORDER [None]
  - POOR PERIPHERAL CIRCULATION [None]
  - VASCULAR GRAFT COMPLICATION [None]
  - VISUAL ACUITY REDUCED [None]
